FAERS Safety Report 6137581-6 (Version None)
Quarter: 2009Q1

REPORT INFORMATION
  Report Type: 
  Country: None (occurrence: None)
  Receive Date: 20090327
  Receipt Date: 20090327
  Transmission Date: 20090719
  Serious: No
  Sender: FDA-Public Use
  Company Number: None

PATIENT
  Age: 64 Year
  Sex: Female
  Weight: 70.7611 kg

DRUGS (2)
  1. METOPROLOL SUCCINATE EXTENDED RELEASE [Suspect]
     Indication: PALPITATIONS
     Dosage: 1/2 TABLET TWICE A DAY
     Dates: start: 20090204, end: 20090301
  2. METOPROLOL SUCCINATE EXTENDED RELEASE [Suspect]
     Indication: PALPITATIONS
     Dosage: 1/2 TABLET TWICE A DAY
     Dates: start: 20090105, end: 20090119

REACTIONS (13)
  - ASTHENIA [None]
  - BURNING SENSATION [None]
  - DIZZINESS [None]
  - GAIT DISTURBANCE [None]
  - HYPOAESTHESIA FACIAL [None]
  - PALPITATIONS [None]
  - PARAESTHESIA [None]
  - POOR QUALITY SLEEP [None]
  - PRODUCT QUALITY ISSUE [None]
  - RESTLESS LEGS SYNDROME [None]
  - STOMATITIS [None]
  - SWELLING FACE [None]
  - VOMITING [None]
